FAERS Safety Report 11087123 (Version 1)
Quarter: 2015Q2

REPORT INFORMATION
  Report Type: Spontaneous
  Country: IT (occurrence: IT)
  Receive Date: 20150504
  Receipt Date: 20150504
  Transmission Date: 20150821
  Serious: Yes (Hospitalization)
  Sender: FDA-Public Use
  Company Number: IT-BAYER-2015-180415

PATIENT
  Age: 85 Year
  Sex: Female

DRUGS (1)
  1. ULTRAVIST [Suspect]
     Active Substance: IOPROMIDE
     Indication: DIAGNOSTIC PROCEDURE
     Dosage: 115 ML, ONCE
     Route: 042

REACTIONS (7)
  - Hypotension [Recovering/Resolving]
  - Syncope [Recovering/Resolving]
  - Urinary incontinence [Recovering/Resolving]
  - Nausea [Recovering/Resolving]
  - Faecal incontinence [Recovering/Resolving]
  - Throat tightness [Recovering/Resolving]
  - Vasodilatation [Recovering/Resolving]

NARRATIVE: CASE EVENT DATE: 20150423
